FAERS Safety Report 6578772-X (Version None)
Quarter: 2010Q1

REPORT INFORMATION
  Report Type: 
  Country: None (occurrence: None)
  Receive Date: 20100202
  Receipt Date: 20100120
  Transmission Date: 20100710
  Serious: Yes (Other)
  Sender: FDA-Public Use
  Company Number: 005075

PATIENT
  Age: 60 Year
  Sex: Male

DRUGS (1)
  1. KEPPRA [Suspect]
     Indication: EPILEPSY
     Dosage: (ORAL)
     Route: 048
     Dates: start: 20091001

REACTIONS (1)
  - THROMBOCYTOPENIA [None]
